FAERS Safety Report 10370050 (Version 4)
Quarter: 2014Q4

REPORT INFORMATION
  Report Type: Spontaneous
  Country: US (occurrence: US)
  Receive Date: 20140808
  Receipt Date: 20141021
  Transmission Date: 20150528
  Serious: Yes (Disabling, Other)
  Sender: FDA-Public Use
  Company Number: US-009507513-1408USA000624

PATIENT
  Age: 33 Year
  Sex: Female
  Weight: 63.49 kg

DRUGS (3)
  1. NEXPLANON [Suspect]
     Active Substance: ETONOGESTREL
     Indication: OVARIAN CYST
     Dosage: 1 ROD 3 YEARS
     Route: 059
     Dates: start: 20140425, end: 20140730
  2. NEXPLANON [Suspect]
     Active Substance: ETONOGESTREL
     Indication: CONTRACEPTIVE IMPLANT
     Dosage: UNK
     Route: 059
     Dates: start: 2014
  3. NEXPLANON [Suspect]
     Active Substance: ETONOGESTREL
     Indication: CONTRACEPTION

REACTIONS (13)
  - Surgery [Unknown]
  - Anger [Recovering/Resolving]
  - Depressed mood [Recovering/Resolving]
  - Device kink [Recovered/Resolved]
  - Fatigue [Recovering/Resolving]
  - Nausea [Recovered/Resolved]
  - Crying [Recovering/Resolving]
  - Vomiting [Recovered/Resolved]
  - Device breakage [Recovered/Resolved]
  - Mood swings [Recovering/Resolving]
  - Blindness unilateral [Recovering/Resolving]
  - Emotional disorder [Recovered/Resolved]
  - Migraine [Recovered/Resolved]

NARRATIVE: CASE EVENT DATE: 2014
